FAERS Safety Report 24625988 (Version 1)
Quarter: 2024Q4

REPORT INFORMATION
  Report Type: Spontaneous
  Country: US (occurrence: US)
  Receive Date: 20241115
  Receipt Date: 20241115
  Transmission Date: 20250114
  Serious: Yes (Other)
  Sender: ELI LILLY AND COMPANY
  Company Number: US-ELI_LILLY_AND_COMPANY-US202411004548

PATIENT
  Age: 70 Year
  Sex: Female

DRUGS (7)
  1. BASAGLAR [Suspect]
     Active Substance: INSULIN GLARGINE
     Indication: Type 2 diabetes mellitus
     Dosage: 45 U, EACH MORNING
     Route: 065
     Dates: start: 2022
  2. BASAGLAR [Suspect]
     Active Substance: INSULIN GLARGINE
     Indication: Type 2 diabetes mellitus
     Dosage: 45 U, EACH MORNING
     Route: 065
     Dates: start: 2022
  3. BASAGLAR [Suspect]
     Active Substance: INSULIN GLARGINE
     Dosage: 45 U, DAILY (AT NIGHT)
     Route: 065
     Dates: start: 2022
  4. BASAGLAR [Suspect]
     Active Substance: INSULIN GLARGINE
     Dosage: 45 U, DAILY (AT NIGHT)
     Route: 065
  5. BASAGLAR [Suspect]
     Active Substance: INSULIN GLARGINE
     Dosage: 45 U, DAILY (AT NIGHT)
     Route: 065
  6. BASAGLAR [Suspect]
     Active Substance: INSULIN GLARGINE
     Dosage: 45 U, DAILY (AT NIGHT)
     Route: 065
     Dates: start: 2022
  7. GLIPIZIDE [Concomitant]
     Active Substance: GLIPIZIDE
     Indication: Type 2 diabetes mellitus

REACTIONS (8)
  - Hepatic cirrhosis [Unknown]
  - Chronic kidney disease [Unknown]
  - Sciatica [Not Recovered/Not Resolved]
  - Vision blurred [Not Recovered/Not Resolved]
  - Blood glucose increased [Not Recovered/Not Resolved]
  - Product storage error [Unknown]
  - Inappropriate schedule of product administration [Unknown]
  - Injection site pain [Not Recovered/Not Resolved]

NARRATIVE: CASE EVENT DATE: 20230101
